FAERS Safety Report 8634877 (Version 3)
Quarter: 2013Q3

REPORT INFORMATION
  Report Type: Spontaneous
  Country: JP (occurrence: JP)
  Receive Date: 20120626
  Receipt Date: 20130802
  Transmission Date: 20140515
  Serious: Yes (Other)
  Sender: FDA-Public Use
  Company Number: JP-PFIZER INC-2012149264

PATIENT
  Age: 82 Year
  Sex: Female

DRUGS (1)
  1. FARMORUBICIN [Suspect]
     Indication: BREAST CANCER
     Dosage: UNK
     Route: 042

REACTIONS (2)
  - Injection site extravasation [Recovered/Resolved]
  - Skin ulcer [Recovered/Resolved]
